FAERS Safety Report 6314798-9 (Version None)
Quarter: 2009Q3

REPORT INFORMATION
  Report Type: 
  Country: None (occurrence: None)
  Receive Date: 20090819
  Receipt Date: 20090813
  Transmission Date: 20100115
  Serious: Yes (Life-Threatening, Hospitalization)
  Sender: FDA-Public Use
  Company Number: DE-ROCHE-650604

PATIENT
  Sex: Male
  Weight: 94 kg

DRUGS (5)
  1. MYCOPHENOLATE MOFETIL [Suspect]
     Indication: RENAL TRANSPLANT
     Route: 048
     Dates: start: 20081229, end: 20090106
  2. THYMOGLOBULIN [Suspect]
     Indication: RENAL TRANSPLANT
     Dosage: REPORTED FREQUENCY: 3 X, DOSAGE FORM: IN 500 ML NACL 0.9%. PERMANENTLY DISCONTINUED.
     Route: 042
     Dates: start: 20081229, end: 20090102
  3. TACROLIMUS [Suspect]
     Indication: RENAL TRANSPLANT
     Route: 048
     Dates: start: 20081229
  4. TACROLIMUS [Suspect]
     Route: 048
     Dates: start: 20090106, end: 20090107
  5. DECORTIN-H [Concomitant]
     Dates: start: 20090103

REACTIONS (1)
  - PERITONITIS [None]
